FAERS Safety Report 16334909 (Version 1)
Quarter: 2019Q2

REPORT INFORMATION
  Report Type: Report from Study
  Country: CA (occurrence: CA)
  Receive Date: 20190520
  Receipt Date: 20190520
  Transmission Date: 20190711
  Serious: Yes (Hospitalization, Other)
  Sender: FDA-Public Use
  Company Number: PHHY2017CA165411

PATIENT
  Age: 43 Year
  Sex: Female
  Weight: 82 kg

DRUGS (4)
  1. COSENTYX [Suspect]
     Active Substance: SECUKINUMAB
     Dosage: UNK
     Route: 065
     Dates: start: 20171224
  2. COSENTYX [Suspect]
     Active Substance: SECUKINUMAB
     Dosage: UNK
     Route: 065
     Dates: start: 20180124
  3. COSENTYX [Suspect]
     Active Substance: SECUKINUMAB
     Dosage: 300 MG, Q4W
     Route: 058
  4. COSENTYX [Suspect]
     Active Substance: SECUKINUMAB
     Indication: PSORIASIS
     Dosage: 300 MG, Q4W
     Route: 058
     Dates: start: 20170426

REACTIONS (12)
  - Intervertebral disc degeneration [Not Recovered/Not Resolved]
  - Sciatica [Recovering/Resolving]
  - Nerve compression [Recovering/Resolving]
  - Cervical spinal stenosis [Not Recovered/Not Resolved]
  - Radiculopathy [Recovered/Resolved]
  - Sensory loss [Recovering/Resolving]
  - Parotitis [Recovered/Resolved]
  - Parotid gland enlargement [Recovering/Resolving]
  - Swelling face [Recovered/Resolved]
  - Fibromyalgia [Recovering/Resolving]
  - Weight decreased [Unknown]
  - Mastocytoma [Recovering/Resolving]

NARRATIVE: CASE EVENT DATE: 201707
